FAERS Safety Report 24358371 (Version 1)
Quarter: 2024Q3

REPORT INFORMATION
  Report Type: Report from Study
  Country: MX (occurrence: MX)
  Receive Date: 20240924
  Receipt Date: 20240924
  Transmission Date: 20241017
  Serious: Yes (Hospitalization)
  Sender: NOVARTIS
  Company Number: MX-002147023-PHHY2013MX016380

PATIENT
  Age: 61 Year
  Sex: Female
  Weight: 60 kg

DRUGS (5)
  1. HYDROCHLOROTHIAZIDE\VALSARTAN [Suspect]
     Active Substance: HYDROCHLOROTHIAZIDE\VALSARTAN
     Indication: Hypertension
     Dosage: 0.5 DF (160/ 12.5 MG), DAILY
     Route: 048
     Dates: start: 20111126
  2. HYDROCHLOROTHIAZIDE\VALSARTAN [Suspect]
     Active Substance: HYDROCHLOROTHIAZIDE\VALSARTAN
     Dosage: 0.5 DF (160/ 12.5 MG)
     Route: 048
  3. HYDROCHLOROTHIAZIDE\VALSARTAN [Suspect]
     Active Substance: HYDROCHLOROTHIAZIDE\VALSARTAN
     Dosage: 1 DOSAGE FORM (160/12. 5 MG)
     Route: 048
     Dates: start: 2014, end: 2020
  4. HYDROCHLOROTHIAZIDE\VALSARTAN [Suspect]
     Active Substance: HYDROCHLOROTHIAZIDE\VALSARTAN
     Dosage: 1 DF, QD ( 80/12.5 MG)
     Route: 048
     Dates: start: 2020
  5. CALTRATE [Concomitant]
     Active Substance: CALCIUM CARBONATE
     Indication: Bone disorder
     Dosage: 1 DOSAGE FORM, QD
     Route: 048

REACTIONS (12)
  - Back pain [Recovering/Resolving]
  - Hypotension [Unknown]
  - Breast swelling [Unknown]
  - Wrong technique in product usage process [Not Recovered/Not Resolved]
  - Influenza [Recovering/Resolving]
  - Chills [Unknown]
  - Somnolence [Unknown]
  - Headache [Unknown]
  - Pain [Unknown]
  - Overweight [Unknown]
  - Weight decreased [Unknown]
  - Prescription drug used without a prescription [Unknown]

NARRATIVE: CASE EVENT DATE: 20130101
